FAERS Safety Report 7300906-X (Version None)
Quarter: 2010Q4

REPORT INFORMATION
  Report Type: 
  Country: None (occurrence: None)
  Receive Date: 20101230
  Receipt Date: 20101005
  Transmission Date: 20110411
  Serious: Yes (Other)
  Sender: FDA-Public Use
  Company Number: 20100481

PATIENT
  Age: 55 Year
  Sex: Female

DRUGS (12)
  1. VENOFER [Suspect]
     Indication: ANAEMIA
     Dosage: INTRAVENOUS DRIP
     Route: 041
     Dates: start: 20100305, end: 20100305
  2. CELLCEPT [Concomitant]
  3. NEPHRO CAPS [Concomitant]
  4. NIFEDIPINE [Concomitant]
  5. OSCAL [Concomitant]
  6. PRAVASTATIN [Concomitant]
  7. PREDNISONE [Concomitant]
  8. PRILOSEC [Concomitant]
  9. PROGRAF [Concomitant]
  10. SODIUM BICARBONATE [Concomitant]
  11. LISINOPRIL [Concomitant]
  12. ACYCLOVIR [Concomitant]

REACTIONS (3)
  - FEELING HOT [None]
  - LOSS OF CONSCIOUSNESS [None]
  - NAUSEA [None]
